FAERS Safety Report 21770817 (Version 2)
Quarter: 2022Q4

REPORT INFORMATION
  Report Type: Spontaneous
  Country: GB (occurrence: None)
  Receive Date: 20221223
  Receipt Date: 20221229
  Transmission Date: 20230112
  Serious: Yes (Hospitalization, Other)
  Sender: FDA-Public Use
  Company Number: GB-ROCHE-3247268

PATIENT
  Age: 55 Year
  Sex: Male

DRUGS (12)
  1. RITUXIMAB [Suspect]
     Active Substance: RITUXIMAB
     Indication: High-grade B-cell lymphoma
     Route: 065
     Dates: start: 20220909, end: 20220914
  2. POLATUZUMAB VEDOTIN [Suspect]
     Active Substance: POLATUZUMAB VEDOTIN
     Indication: High-grade B-cell lymphoma
     Route: 065
     Dates: start: 20221203, end: 20221203
  3. VINCRISTINE [Suspect]
     Active Substance: VINCRISTINE
     Indication: High-grade B-cell lymphoma
     Route: 065
     Dates: start: 20210909, end: 20210914
  4. VINCRISTINE [Suspect]
     Active Substance: VINCRISTINE
     Route: 065
     Dates: start: 20210917, end: 20220103
  5. CYCLOPHOSPHAMIDE [Suspect]
     Active Substance: CYCLOPHOSPHAMIDE
     Indication: High-grade B-cell lymphoma
     Route: 065
     Dates: start: 20210917, end: 20220103
  6. DOXORUBICIN HYDROCHLORIDE [Suspect]
     Active Substance: DOXORUBICIN HYDROCHLORIDE
     Indication: High-grade B-cell lymphoma
     Route: 065
     Dates: start: 20210917, end: 20220103
  7. PREDNISONE [Suspect]
     Active Substance: PREDNISONE
     Indication: High-grade B-cell lymphoma
     Route: 065
     Dates: start: 20210917, end: 20220103
  8. GEMCITABINE [Suspect]
     Active Substance: GEMCITABINE
     Indication: High-grade B-cell lymphoma
     Route: 065
     Dates: start: 20220420, end: 20220512
  9. CISPLATIN [Suspect]
     Active Substance: CISPLATIN
     Indication: High-grade B-cell lymphoma
     Dosage: 2 CYCLES
     Route: 065
     Dates: start: 20220420, end: 20220512
  10. CARBOPLATIN [Suspect]
     Active Substance: CARBOPLATIN
     Indication: High-grade B-cell lymphoma
     Dosage: 2 CYCLES
     Route: 065
     Dates: start: 20220420, end: 20220512
  11. OXALIPLATIN [Suspect]
     Active Substance: OXALIPLATIN
     Indication: High-grade B-cell lymphoma
     Dosage: 2 CYCLES
     Route: 065
     Dates: start: 20220420, end: 20220512
  12. BENDAMUSTINE [Suspect]
     Active Substance: BENDAMUSTINE
     Indication: High-grade B-cell lymphoma
     Route: 065
     Dates: start: 20221203, end: 20221203

REACTIONS (3)
  - COVID-19 [Not Recovered/Not Resolved]
  - Gastrointestinal obstruction [Unknown]
  - Disease progression [Unknown]

NARRATIVE: CASE EVENT DATE: 20221025
